FAERS Safety Report 9046567 (Version 2)
Quarter: 2013Q1

REPORT INFORMATION
  Report Type: Spontaneous
  Country: US (occurrence: US)
  Receive Date: 20130203
  Receipt Date: 20130205
  Transmission Date: 20140127
  Serious: No
  Sender: FDA-Public Use
  Company Number: US-009507513-1301USA012289

PATIENT
  Age: 61 None
  Sex: Female

DRUGS (2)
  1. SINGULAIR [Suspect]
     Indication: ASTHMA
     Dosage: UNK
     Route: 048
     Dates: start: 20121213, end: 20121220
  2. MONTELUKAST SODIUM [Suspect]
     Dosage: UNK
     Route: 048
     Dates: start: 20121213, end: 20121220

REACTIONS (5)
  - Heart rate increased [Recovered/Resolved]
  - Overdose [Unknown]
  - Agitation [Recovered/Resolved]
  - Nervousness [Recovered/Resolved]
  - Insomnia [Recovered/Resolved]
